FAERS Safety Report 12607010 (Version 2)
Quarter: 2016Q3

REPORT INFORMATION
  Report Type: Spontaneous
  Country: GB (occurrence: GB)
  Receive Date: 20160729
  Receipt Date: 20160803
  Transmission Date: 20161109
  Serious: Yes (Hospitalization)
  Sender: FDA-Public Use
  Company Number: GB-PFIZER INC-2016354432

PATIENT
  Age: 77 Year
  Sex: Female

DRUGS (15)
  1. ZOPICLONE [Suspect]
     Active Substance: ZOPICLONE
  2. ATORVASTATIN [Suspect]
     Active Substance: ATORVASTATIN
     Dosage: UNK
  3. BETAHISTINE [Suspect]
     Active Substance: BETAHISTINE
  4. ELIQUIS [Suspect]
     Active Substance: APIXABAN
  5. BISOPROLOL [Suspect]
     Active Substance: BISOPROLOL
     Dosage: UNK
  6. PREGABALIN. [Suspect]
     Active Substance: PREGABALIN
  7. PREDNISOLONE. [Suspect]
     Active Substance: PREDNISOLONE
  8. FERROUS GLUCONATE [Suspect]
     Active Substance: FERROUS GLUCONATE
  9. LEVOTHYROXINE. [Suspect]
     Active Substance: LEVOTHYROXINE
  10. LINAGLIPTIN [Suspect]
     Active Substance: LINAGLIPTIN
  11. MONTELUKAST [Suspect]
     Active Substance: MONTELUKAST SODIUM
  12. OMEPRAZOLE. [Suspect]
     Active Substance: OMEPRAZOLE
  13. THIAMINE. [Suspect]
     Active Substance: THIAMINE
  14. SERETIDE [Suspect]
     Active Substance: FLUTICASONE PROPIONATE\SALMETEROL XINAFOATE
  15. UMECLIDINIUM [Suspect]
     Active Substance: UMECLIDINIUM BROMIDE

REACTIONS (3)
  - Cough [Unknown]
  - Sputum discoloured [Unknown]
  - Lethargy [Unknown]

NARRATIVE: CASE EVENT DATE: 20160711
